FAERS Safety Report 4475339-4 (Version None)
Quarter: 2004Q4

REPORT INFORMATION
  Report Type: 
  Country: None (occurrence: None)
  Receive Date: 20041013
  Receipt Date: 20041013
  Transmission Date: 20050328
  Serious: Yes (Hospitalization, Other)
  Sender: FDA-Public Use
  Company Number: None

PATIENT
  Age: 83 Year
  Sex: Female
  Weight: 82.5547 kg

DRUGS (19)
  1. ELIXOPHYLLIN [Suspect]
     Dosage: 18.8 ML (100MG) VT Q8H
  2. COUMADIN [Concomitant]
  3. INSULIN [Concomitant]
  4. MULTI-VITAMIN [Concomitant]
  5. COZAAR [Concomitant]
  6. NITROGLYCERIN [Concomitant]
  7. PROTONIX [Concomitant]
  8. KCL TAB [Concomitant]
  9. LEXAPRO [Concomitant]
  10. ASPIRIN [Concomitant]
  11. LASIX [Concomitant]
  12. LOPRESSOR [Concomitant]
  13. BUSPAR [Concomitant]
  14. TRAZODONE HCL [Concomitant]
  15. ALBUTEROL [Concomitant]
  16. LOPERAMIDE HCL [Concomitant]
  17. TYLENOL [Concomitant]
  18. SIMETHICONE [Concomitant]
  19. DILTIAZEM [Concomitant]

REACTIONS (3)
  - CONVULSION [None]
  - DRUG TOXICITY [None]
  - EPILEPSY [None]
